FAERS Safety Report 9698404 (Version 2)
Quarter: 2013Q4

REPORT INFORMATION
  Report Type: Spontaneous
  Country: CH (occurrence: CH)
  Receive Date: 20131120
  Receipt Date: 20131120
  Transmission Date: 20140711
  Serious: Yes (Hospitalization, Other)
  Sender: FDA-Public Use
  Company Number: CH-CELGENEUS-151-21880-13100291

PATIENT
  Age: 71 Year
  Sex: Female

DRUGS (6)
  1. REVLIMID [Suspect]
     Indication: PLASMA CELL MYELOMA
     Dosage: 25 MILLIGRAM
     Route: 048
     Dates: start: 20110606, end: 20130402
  2. DEXAMETHASONE [Concomitant]
     Indication: PLASMA CELL MYELOMA
     Dosage: 40 MILLIGRAM
     Route: 048
     Dates: start: 20110606, end: 20130311
  3. ASPIRINE [Concomitant]
     Indication: THROMBOSIS PROPHYLAXIS
     Dosage: 100 MILLIGRAM
     Route: 065
     Dates: start: 20110606, end: 20111026
  4. ZOMETA [Concomitant]
     Indication: PRODUCT USED FOR UNKNOWN INDICATION
     Dosage: 4 MILLIGRAM
     Route: 065
     Dates: start: 20110928
  5. RED BLOOD CELLS [Concomitant]
     Indication: ANAEMIA
     Route: 065
  6. BACTRIM [Concomitant]
     Indication: PROPHYLAXIS
     Dosage: 800/600
     Route: 048
     Dates: start: 20110606, end: 20121002

REACTIONS (2)
  - Deep vein thrombosis [Recovered/Resolved]
  - Synovial cyst [Unknown]
